FAERS Safety Report 7939201-4 (Version None)
Quarter: 2011Q4

REPORT INFORMATION
  Report Type: 
  Country: None (occurrence: None)
  Receive Date: 20111124
  Receipt Date: 20111110
  Transmission Date: 20120403
  Serious: Yes (Other)
  Sender: FDA-Public Use
  Company Number: US-ROCHE-786887

PATIENT
  Sex: Female
  Weight: 46.308 kg

DRUGS (8)
  1. VITAMIN D [Concomitant]
  2. ESTROGENIC SUBSTANCE [Concomitant]
     Dates: start: 20020101
  3. CALCIUM SUPPLEMENT [Concomitant]
  4. ZETIA [Concomitant]
  5. LIPITOR [Concomitant]
     Dates: start: 20000101
  6. BONIVA [Suspect]
     Indication: OSTEOPOROSIS
     Route: 048
     Dates: start: 20060116, end: 20110527
  7. RISEDRONATE SODIUM [Suspect]
     Indication: PRODUCT USED FOR UNKNOWN INDICATION
     Dates: start: 20040611, end: 20060116
  8. ZOLOFT [Concomitant]
     Dates: start: 19920101

REACTIONS (1)
  - HIP FRACTURE [None]
